FAERS Safety Report 6428019-X (Version None)
Quarter: 2009Q4

REPORT INFORMATION
  Report Type: 
  Country: None (occurrence: None)
  Receive Date: 20091105
  Receipt Date: 20091026
  Transmission Date: 20100525
  Serious: Yes (Hospitalization)
  Sender: FDA-Public Use
  Company Number: BR-ROCHE-664885

PATIENT
  Sex: Male
  Weight: 89 kg

DRUGS (2)
  1. RIBAVIRIN [Suspect]
     Route: 048
     Dates: start: 20090922
  2. PEG-INTERFERON ALFA 2A (RO 25-8310) [Suspect]
     Dosage: DOSAGE FORM: NOT REPORTED.
     Route: 058
     Dates: start: 20090922

REACTIONS (1)
  - SYNCOPE [None]
